FAERS Safety Report 11833915 (Version 1)
Quarter: 2015Q4

REPORT INFORMATION
  Report Type: Spontaneous
  Country: FR (occurrence: FR)
  Receive Date: 20151214
  Receipt Date: 20151214
  Transmission Date: 20160305
  Serious: Yes (Hospitalization, Other)
  Sender: FDA-Public Use
  Company Number: FR-GILEAD-2015-0187496

PATIENT
  Age: 62 Year
  Sex: Male

DRUGS (10)
  1. RALTEGRAVIR. [Concomitant]
     Active Substance: RALTEGRAVIR
     Indication: HIV INFECTION
     Route: 048
  2. DACLATASVIR DIHYDROCHLORIDE [Interacting]
     Active Substance: DACLATASVIR DIHYDROCHLORIDE
     Indication: HEPATITIS C
     Dosage: 30 MG, QD
     Route: 048
     Dates: start: 20141219, end: 20150116
  3. TRUVADA [Suspect]
     Active Substance: EMTRICITABINE\TENOFOVIR DISOPROXIL FUMARATE
     Indication: HIV INFECTION
     Route: 048
  4. CONTRAMAL [Concomitant]
     Active Substance: TRAMADOL HYDROCHLORIDE
     Indication: ABDOMINAL PAIN
     Dosage: 50 MG, QD
     Dates: start: 201404
  5. SERESTA [Concomitant]
     Active Substance: OXAZEPAM
     Indication: ANXIETY
     Dosage: 1 DF, QD
     Dates: start: 2013
  6. NORVIR [Concomitant]
     Active Substance: RITONAVIR
     Indication: HIV INFECTION
     Route: 048
  7. SOVALDI [Interacting]
     Active Substance: SOFOSBUVIR
     Indication: HEPATITIS C
     Dosage: 400 MG, QD
     Route: 048
     Dates: start: 20141219, end: 20150116
  8. ASPEGIC [Concomitant]
     Active Substance: ASPIRIN DL-LYSINE
     Indication: CORONARY ARTERY DISEASE
     Dosage: 75 MG, UNK
     Dates: start: 2008
  9. PREZISTA [Concomitant]
     Active Substance: DARUNAVIR ETHANOLATE
     Indication: HIV INFECTION
     Route: 048
  10. AVLOCARDYL                         /00030001/ [Concomitant]
     Active Substance: PROPRANOLOL HYDROCHLORIDE
     Indication: OESOPHAGEAL VARICES HAEMORRHAGE
     Dosage: 1 DF, QD
     Dates: start: 201409

REACTIONS (4)
  - Fall [Unknown]
  - Drug interaction [Unknown]
  - Renal tubular disorder [Unknown]
  - Acute kidney injury [Recovering/Resolving]
